FAERS Safety Report 4930524-X (Version None)
Quarter: 2006Q1

REPORT INFORMATION
  Report Type: 
  Country: None (occurrence: None)
  Receive Date: 20060302
  Receipt Date: 20050105
  Transmission Date: 20060701
  Serious: Yes (Hospitalization)
  Sender: FDA-Public Use
  Company Number: US-MERCK-0501USA00571

PATIENT
  Age: 64 Year
  Sex: Female
  Weight: 83 kg

DRUGS (5)
  1. VIOXX [Suspect]
     Indication: BACK PAIN
     Route: 048
     Dates: start: 20000301, end: 20030701
  2. VIOXX [Suspect]
     Indication: PAIN IN EXTREMITY
     Route: 048
     Dates: start: 20000301, end: 20030701
  3. [THERAPY UNSPECIFIED] [Concomitant]
     Route: 065
  4. PREMARIN [Concomitant]
     Route: 065
  5. VASOTEC RPD [Concomitant]
     Route: 065

REACTIONS (23)
  - ANKLE FRACTURE [None]
  - ARRHYTHMIA SUPRAVENTRICULAR [None]
  - ATRIAL FIBRILLATION [None]
  - BACK DISORDER [None]
  - CARDIAC FAILURE [None]
  - CAROTID ARTERY ATHEROMA [None]
  - CAROTID ARTERY STENOSIS [None]
  - CONSTIPATION [None]
  - DIARRHOEA [None]
  - DIZZINESS [None]
  - DRUG WITHDRAWAL SYNDROME [None]
  - DYSPHAGIA [None]
  - FLUSHING [None]
  - GASTRIC ADENOMA [None]
  - GASTRIC NEOPLASM [None]
  - GASTROOESOPHAGEAL REFLUX DISEASE [None]
  - HYPERHIDROSIS [None]
  - LUMBAR SPINAL STENOSIS [None]
  - OEDEMA PERIPHERAL [None]
  - PALPITATIONS [None]
  - SUBCLAVIAN ARTERY STENOSIS [None]
  - SUBCLAVIAN STEAL SYNDROME [None]
  - TREMOR [None]
